FAERS Safety Report 12001315 (Version 2)
Quarter: 2016Q1

REPORT INFORMATION
  Report Type: Spontaneous
  Country: US (occurrence: US)
  Receive Date: 20160204
  Receipt Date: 20160315
  Transmission Date: 20160526
  Serious: Yes (Other)
  Sender: FDA-Public Use
  Company Number: US-JNJFOC-20160122249

PATIENT
  Sex: Male

DRUGS (2)
  1. RISPERDAL [Suspect]
     Active Substance: RISPERIDONE
     Indication: HUNTINGTON^S DISEASE
     Route: 048
  2. RISPERIDONE. [Suspect]
     Active Substance: RISPERIDONE
     Indication: HUNTINGTON^S DISEASE
     Route: 048

REACTIONS (10)
  - Abasia [Unknown]
  - Drug ineffective for unapproved indication [Unknown]
  - Epistaxis [Unknown]
  - Product use issue [Unknown]
  - Mental disorder [Unknown]
  - Fall [Unknown]
  - Tongue biting [Unknown]
  - Off label use [Unknown]
  - Seizure [Recovered/Resolved]
  - Restlessness [Recovered/Resolved]

NARRATIVE: CASE EVENT DATE: 201512
